FAERS Safety Report 8200344-1 (Version None)
Quarter: 2012Q1

REPORT INFORMATION
  Report Type: 
  Country: None (occurrence: None)
  Receive Date: 20120306
  Receipt Date: 20120224
  Transmission Date: 20120608
  Serious: Yes (Life-Threatening)
  Sender: FDA-Public Use
  Company Number: AUR-APL-2012-01181

PATIENT
  Age: 45 Year
  Sex: Female

DRUGS (1)
  1. AMOXICILLIN [Suspect]
     Indication: PRODUCT USED FOR UNKNOWN INDICATION
     Dosage: 1 GM, 1 D, ORAL
     Route: 048
     Dates: start: 20120213, end: 20120213

REACTIONS (6)
  - HYPOTENSION [None]
  - NAUSEA [None]
  - GENERALISED ERYTHEMA [None]
  - VOMITING [None]
  - SOPOR [None]
  - HYPERGLYCAEMIA [None]
